FAERS Safety Report 14850230 (Version 1)
Quarter: 2018Q2

REPORT INFORMATION
  Report Type: Spontaneous
  Country: CZ (occurrence: CZ)
  Receive Date: 20180505
  Receipt Date: 20180505
  Transmission Date: 20180711
  Serious: Yes (Hospitalization, Other)
  Sender: FDA-Public Use
  Company Number: CZ-ROCHE-2117143

PATIENT
  Sex: Female

DRUGS (1)
  1. BONVIVA [Suspect]
     Active Substance: IBANDRONATE SODIUM
     Indication: OSTEOPOROSIS
     Route: 065
     Dates: start: 2009, end: 201609

REACTIONS (21)
  - Swelling face [Unknown]
  - Ear infection [Unknown]
  - Gait disturbance [Not Recovered/Not Resolved]
  - Urticaria [Unknown]
  - Ocular hyperaemia [Unknown]
  - Fatigue [Unknown]
  - Flatulence [Unknown]
  - Raynaud^s phenomenon [Unknown]
  - Femur fracture [Unknown]
  - Femur fracture [Recovered/Resolved]
  - Diverticulum [Unknown]
  - Muscle spasms [Unknown]
  - Muscular weakness [Unknown]
  - Gastritis [Unknown]
  - Back pain [Unknown]
  - Pruritus [Unknown]
  - Eye pain [Unknown]
  - Masticatory pain [Unknown]
  - Abdominal pain [Unknown]
  - Headache [Unknown]
  - Constipation [Unknown]

NARRATIVE: CASE EVENT DATE: 2015
